FAERS Safety Report 10100392 (Version 2)
Quarter: 2014Q2

REPORT INFORMATION
  Report Type: Spontaneous
  Country: US (occurrence: US)
  Receive Date: 20140423
  Receipt Date: 20140620
  Transmission Date: 20141212
  Serious: Yes (Other)
  Sender: FDA-Public Use
  Company Number: US-SA-2014SA048388

PATIENT
  Age: 74 Year
  Sex: Female

DRUGS (2)
  1. LANTUS [Suspect]
     Indication: DIABETES MELLITUS
     Dosage: DOSE:64 UNIT(S)
     Route: 058
  2. LANTUS [Suspect]
     Indication: DIABETES MELLITUS
     Dosage: FORM: SHOT DOSE:65 UNIT(S)
     Route: 065
     Dates: start: 200001

REACTIONS (3)
  - Blindness [Not Recovered/Not Resolved]
  - Condition aggravated [Unknown]
  - Drug dose omission [Unknown]
